FAERS Safety Report 4766769-1 (Version None)
Quarter: 2005Q3

REPORT INFORMATION
  Report Type: 
  Country: None (occurrence: None)
  Receive Date: 20050912
  Receipt Date: 20050902
  Transmission Date: 20060218
  Serious: Yes (Hospitalization)
  Sender: FDA-Public Use
  Company Number: FR-MERCK-0509FRA00007

PATIENT
  Age: 58 Year
  Sex: Male

DRUGS (6)
  1. VIOXX [Suspect]
     Indication: OSTEOARTHRITIS
     Route: 048
     Dates: start: 20031101
  2. KETOCONAZOLE [Concomitant]
     Route: 061
     Dates: start: 20031129
  3. DESONIDE [Concomitant]
     Route: 061
     Dates: start: 20031129
  4. OMEPRAZOLE SODIUM [Concomitant]
     Indication: GASTRODUODENAL ULCER
     Route: 048
  5. QUININE AND THIAMINE [Concomitant]
     Route: 048
     Dates: start: 20031129
  6. KETOPROFEN [Concomitant]
     Indication: SHOULDER PAIN
     Route: 061
     Dates: start: 20031129

REACTIONS (2)
  - CORONARY ARTERY DISEASE [None]
  - MYOCARDIAL INFARCTION [None]
